FAERS Safety Report 4986692-7 (Version None)
Quarter: 2006Q2

REPORT INFORMATION
  Report Type: 
  Country: None (occurrence: None)
  Receive Date: 20060428
  Receipt Date: 20050919
  Transmission Date: 20061013
  Serious: Yes (Hospitalization, Disabling)
  Sender: FDA-Public Use
  Company Number: US-MERCK-0509USA02948

PATIENT
  Age: 59 Year
  Sex: Female
  Weight: 81 kg

DRUGS (3)
  1. VIOXX [Suspect]
     Indication: BACK DISORDER
     Route: 048
     Dates: start: 20000802, end: 20010214
  2. VIOXX [Suspect]
     Indication: ARTHRITIS
     Route: 048
     Dates: start: 20000802, end: 20010214
  3. ASPIRIN [Concomitant]
     Route: 065

REACTIONS (4)
  - BREAST DISORDER [None]
  - CEREBROVASCULAR ACCIDENT [None]
  - MYOCARDIAL INFARCTION [None]
  - SPINAL CORD INJURY [None]
